FAERS Safety Report 5195486-1 (Version None)
Quarter: 2006Q4

REPORT INFORMATION
  Report Type: 
  Country: None (occurrence: None)
  Receive Date: 20061222
  Receipt Date: 20061222
  Transmission Date: 20070319
  Serious: Yes (Hospitalization)
  Sender: FDA-Public Use
  Company Number: None

PATIENT
  Sex: Female
  Weight: 60.782 kg

DRUGS (11)
  1. CETUXIMAB [Suspect]
     Indication: PANCREATIC CARCINOMA METASTATIC
     Dosage: 390MG-1560MG EVERY 3 WEEKS IV
     Route: 042
     Dates: start: 20060801
  2. OXALIPLATIN [Suspect]
     Indication: PANCREATIC CARCINOMA METASTATIC
     Dosage: 156MG EVERY 3 WEEKS IV
     Route: 042
     Dates: start: 20060802
  3. TOPROL-XL [Concomitant]
  4. FOSAMAX [Concomitant]
  5. ACTOS [Concomitant]
  6. INSULIN (SLIDING SCALE) [Concomitant]
  7. PROTONIX [Concomitant]
  8. MULTIVITAMINS: B50, B12 [Concomitant]
  9. FOLIC ACID [Concomitant]
  10. LUTEIN [Concomitant]
  11. GEMCITABINE [Suspect]

REACTIONS (4)
  - ANAEMIA [None]
  - DEEP VEIN THROMBOSIS [None]
  - FATIGUE [None]
  - THROMBOCYTOPENIA [None]
